FAERS Safety Report 17661221 (Version 1)
Quarter: 2020Q2

REPORT INFORMATION
  Report Type: Spontaneous
  Country: US (occurrence: US)
  Receive Date: 20200411
  Receipt Date: 20200411
  Transmission Date: 20200713
  Serious: Yes (Disabling)
  Sender: FDA-Public Use
  Company Number: None

PATIENT
  Age: 95 Year
  Sex: Female
  Weight: 45 kg

DRUGS (7)
  1. LOSARTAN TAB [Concomitant]
     Active Substance: LOSARTAN
  2. CARVEDILOL TAB [Concomitant]
     Active Substance: CARVEDILOL
  3. SPIRONOLACTONE TAB [Concomitant]
  4. ERIVEDGE [Suspect]
     Active Substance: VISMODEGIB
     Indication: MALIGNANT MELANOMA
     Dosage: ?          QUANTITY:1 CAPSULE(S);?
     Route: 048
     Dates: start: 20200123, end: 20200322
  5. FUROSEMIDE TAB [Concomitant]
  6. ECOTRIN [Concomitant]
     Active Substance: ASPIRIN
  7. ISOSORBIDE MONONITRATE TAB [Concomitant]

REACTIONS (6)
  - Taste disorder [None]
  - Weight decreased [None]
  - Fatigue [None]
  - Diverticulitis [None]
  - Nausea [None]
  - Asthenia [None]

NARRATIVE: CASE EVENT DATE: 20200322
